FAERS Safety Report 9684638 (Version 1)
Quarter: 2013Q4

REPORT INFORMATION
  Report Type: Spontaneous
  Country: FR (occurrence: FR)
  Receive Date: 20131112
  Receipt Date: 20131112
  Transmission Date: 20140711
  Serious: Yes (Hospitalization)
  Sender: FDA-Public Use
  Company Number: FR-B.I. PHARMACEUTICALS,INC./RIDGEFIELD-2013-FF-02651FF

PATIENT
  Age: 68 Year
  Sex: Male

DRUGS (9)
  1. SPIRIVA [Suspect]
     Route: 055
  2. OMEPRAZOLE [Suspect]
     Dosage: 20 MG
     Route: 048
     Dates: start: 201211, end: 20130925
  3. FUROSEMIDE [Suspect]
     Dosage: 40 MG
     Route: 048
     Dates: start: 201308, end: 20130925
  4. INNOVAIR [Suspect]
     Route: 055
  5. PLAVIX [Suspect]
     Dosage: 75 MG
     Route: 048
     Dates: end: 20130920
  6. ZOXAN [Suspect]
     Dosage: 8 MG
     Route: 048
     Dates: end: 20130919
  7. LANTUS [Suspect]
     Dosage: 10 U
     Route: 058
  8. HUMALOG [Suspect]
     Route: 058
  9. TRIVASTAL [Suspect]
     Dosage: 50 MG
     Route: 048
     Dates: end: 20130920

REACTIONS (1)
  - Tubulointerstitial nephritis [Not Recovered/Not Resolved]
